FAERS Safety Report 12315269 (Version 3)
Quarter: 2016Q2

REPORT INFORMATION
  Report Type: Spontaneous
  Country: IT (occurrence: IT)
  Receive Date: 20160428
  Receipt Date: 20160520
  Transmission Date: 20160815
  Serious: Yes (Hospitalization)
  Sender: FDA-Public Use
  Company Number: IT-JNJFOC-20160411498

PATIENT
  Age: 14 Year
  Sex: Female
  Weight: 75 kg

DRUGS (9)
  1. OKI [Suspect]
     Active Substance: KETOPROFEN LYSINE
     Indication: INTENTIONAL SELF-INJURY
     Route: 048
     Dates: start: 20160411, end: 20160411
  2. VERMOX [Suspect]
     Active Substance: MEBENDAZOLE
     Indication: INTENTIONAL SELF-INJURY
     Route: 048
     Dates: start: 20160411, end: 20160411
  3. ARVENUM [Suspect]
     Active Substance: DIOSMIN
     Indication: INTENTIONAL SELF-INJURY
     Route: 048
     Dates: start: 20160411, end: 20160411
  4. LEVOFLOXACIN. [Suspect]
     Active Substance: LEVOFLOXACIN
     Indication: INTENTIONAL SELF-INJURY
     Route: 048
     Dates: start: 20160411, end: 20160411
  5. CETIRIZINE [Suspect]
     Active Substance: CETIRIZINE HYDROCHLORIDE
     Indication: INTENTIONAL SELF-INJURY
     Route: 048
     Dates: start: 20160411, end: 20160411
  6. AMOXICILLIN/CLAVULANIC ACID [Suspect]
     Active Substance: AMOXICILLIN\CLAVULANIC ACID
     Indication: INTENTIONAL SELF-INJURY
     Route: 048
     Dates: start: 20160411, end: 20160411
  7. CEFIXIME. [Suspect]
     Active Substance: CEFIXIME
     Indication: INTENTIONAL SELF-INJURY
     Route: 048
     Dates: start: 20160411, end: 20160411
  8. PARACETAMOL [Suspect]
     Active Substance: ACETAMINOPHEN
     Indication: INTENTIONAL SELF-INJURY
     Route: 048
     Dates: start: 20160411, end: 20160411
  9. OMEPRAZOLE. [Suspect]
     Active Substance: OMEPRAZOLE
     Indication: INTENTIONAL SELF-INJURY
     Route: 048
     Dates: start: 20160411, end: 20160411

REACTIONS (7)
  - Abdominal pain [Unknown]
  - Intentional self-injury [Unknown]
  - Intentional product misuse [Unknown]
  - Vertigo [Unknown]
  - Somnolence [Unknown]
  - Poisoning [Unknown]
  - Asthenia [Unknown]

NARRATIVE: CASE EVENT DATE: 20160411
